FAERS Safety Report 4388766-0 (Version None)
Quarter: 2004Q3

REPORT INFORMATION
  Report Type: 
  Country: None (occurrence: None)
  Receive Date: 20040701
  Receipt Date: 20040511
  Transmission Date: 20050211
  Serious: Yes (Other)
  Sender: FDA-Public Use
  Company Number: DE-GLAXOSMITHKLINE-D0043755A

PATIENT
  Age: 63 Year
  Sex: Female
  Weight: 76 kg

DRUGS (2)
  1. AVANDIA [Suspect]
     Indication: DIABETES MELLITUS NON-INSULIN-DEPENDENT
     Dosage: 4MG PER DAY
     Route: 048
     Dates: start: 20030515, end: 20040511
  2. METFORMIN [Concomitant]
     Indication: DIABETES MELLITUS NON-INSULIN-DEPENDENT
     Dosage: 850MG TWICE PER DAY
     Route: 048
     Dates: start: 20030515

REACTIONS (3)
  - ALOPECIA [None]
  - ANXIETY [None]
  - INJURY [None]
